APPROVED DRUG PRODUCT: METOLAZONE
Active Ingredient: METOLAZONE
Strength: 10MG
Dosage Form/Route: TABLET;ORAL
Application: A076891 | Product #001
Applicant: WATSON LABORATORIES INC
Approved: Jul 21, 2004 | RLD: No | RS: No | Type: DISCN